FAERS Safety Report 5782054-3 (Version None)
Quarter: 2008Q2

REPORT INFORMATION
  Report Type: 
  Country: None (occurrence: None)
  Receive Date: 20080623
  Receipt Date: 20080611
  Transmission Date: 20081010
  Serious: Yes (Life-Threatening, Hospitalization)
  Sender: FDA-Public Use
  Company Number: MY-ELI_LILLY_AND_COMPANY-MY200806002775

PATIENT
  Age: 22 Year
  Sex: Female

DRUGS (3)
  1. CYMBALTA [Suspect]
     Indication: MAJOR DEPRESSION
     Dosage: 30 MG, DAILY (1/D)
     Route: 048
     Dates: start: 20080604, end: 20080605
  2. TRICYCLIC ANTIDEPRESSANTS [Interacting]
     Indication: DEPRESSION
     Dosage: 50 MG, DAILY (1/D)
     Route: 065
     Dates: end: 20080603
  3. DRUGS FOR TREATMENT OF TUBERCULOSIS [Concomitant]
     Dosage: UNK, UNKNOWN
     Route: 065

REACTIONS (5)
  - BLOOD PRESSURE DECREASED [None]
  - CONVULSION [None]
  - DRUG INTERACTION [None]
  - SEROTONIN SYNDROME [None]
  - TACHYCARDIA [None]
